FAERS Safety Report 11916074 (Version 2)
Quarter: 2016Q1

REPORT INFORMATION
  Report Type: Spontaneous
  Country: JP (occurrence: JP)
  Receive Date: 20160114
  Receipt Date: 20160308
  Transmission Date: 20160526
  Serious: Yes (Hospitalization)
  Sender: FDA-Public Use
  Company Number: JP-ASTRAZENECA-2016SE02507

PATIENT
  Age: 23974 Day
  Sex: Female
  Weight: 55 kg

DRUGS (8)
  1. PYDOXAL [Concomitant]
     Active Substance: PYRIDOXAL
     Indication: ACNE
     Route: 048
     Dates: start: 20151118, end: 20160113
  2. FLAVITAN [Concomitant]
     Active Substance: FLAVIN ADENINE DINUCLEOTIDE
     Indication: ACNE
     Route: 048
     Dates: start: 20151118, end: 20160113
  3. ALLOMIDON [Concomitant]
     Indication: ACNE
     Dosage: OPTIMAL DOSE
     Route: 062
     Dates: start: 20151105, end: 20151117
  4. CLINDAMYCIN [Concomitant]
     Active Substance: CLINDAMYCIN\CLINDAMYCIN PHOSPHATE
     Indication: ACNE
     Dosage: OPTIMAL DOSE
     Route: 062
     Dates: start: 20151118, end: 20151202
  5. ROXITHROMYCIN [Concomitant]
     Active Substance: ROXITHROMYCIN
     Indication: ACNE
     Route: 048
     Dates: start: 20151118, end: 20151207
  6. DEPAS [Concomitant]
     Active Substance: ETIZOLAM
     Indication: INSOMNIA
     Route: 048
     Dates: start: 20151203, end: 20160113
  7. ORADOL [Concomitant]
     Indication: PHARYNGITIS
     Route: 048
     Dates: start: 20150630, end: 20151224
  8. IRESSA [Suspect]
     Active Substance: GEFITINIB
     Indication: LUNG CARCINOMA CELL TYPE UNSPECIFIED RECURRENT
     Route: 048
     Dates: start: 20141202

REACTIONS (2)
  - Pulmonary artery thrombosis [Recovering/Resolving]
  - Deep vein thrombosis [Recovering/Resolving]

NARRATIVE: CASE EVENT DATE: 20151224
